FAERS Safety Report 8960117 (Version 1)
Quarter: 2012Q4

REPORT INFORMATION
  Report Type: 
  Country: IT (occurrence: IT)
  Receive Date: 20121211
  Receipt Date: 20121211
  Transmission Date: 20130627
  Serious: Yes (Hospitalization)
  Sender: FDA-Public Use
  Company Number: IT-GLAXOSMITHKLINE-B0850364A

PATIENT
  Sex: Female

DRUGS (6)
  1. ARIXTRA [Suspect]
     Indication: PRODUCT USED FOR UNKNOWN INDICATION
     Dosage: 7.5ML Per day
     Route: 058
     Dates: start: 20120420, end: 20120423
  2. ROCEFIN [Suspect]
     Indication: PRODUCT USED FOR UNKNOWN INDICATION
     Dosage: 2G Per day
     Route: 048
     Dates: start: 20120420, end: 20120423
  3. LUMINALE [Suspect]
     Indication: PRODUCT USED FOR UNKNOWN INDICATION
     Dosage: 100MG Per day
     Route: 048
     Dates: start: 20120403, end: 20120423
  4. ANTRA [Concomitant]
  5. TACHIPIRINA [Concomitant]
  6. LEVOXACIN [Concomitant]

REACTIONS (2)
  - Stevens-Johnson syndrome [Unknown]
  - Rash macular [Unknown]
